FAERS Safety Report 4281609-5 (Version None)
Quarter: 2004Q1

REPORT INFORMATION
  Report Type: 
  Country: None (occurrence: None)
  Receive Date: 20040123
  Receipt Date: 20021211
  Transmission Date: 20041129
  Serious: Yes (Other)
  Sender: FDA-Public Use
  Company Number: HQ5789212DEC2002

PATIENT
  Age: 86 Year
  Sex: Female
  Weight: 58.11 kg

DRUGS (9)
  1. CORDARONE [Suspect]
     Indication: ATRIAL FIBRILLATION
     Dosage: ^25 MG DAILY^, ORAL
     Route: 048
     Dates: start: 20021001, end: 20021001
  2. CORDARONE [Suspect]
     Indication: ATRIAL FIBRILLATION
     Dosage: ^25 MG DAILY^, ORAL
     Route: 048
     Dates: start: 20021101
  3. LOPRESSOR [Concomitant]
  4. FUROSEMIDE [Concomitant]
  5. FAMOTIDINE [Concomitant]
  6. ALDACTONE [Concomitant]
  7. NORVASC [Concomitant]
  8. PRAVACHOL [Concomitant]
  9. ATIVAN [Concomitant]

REACTIONS (1)
  - URTICARIA [None]
